FAERS Safety Report 11849351 (Version 1)
Quarter: 2015Q4

REPORT INFORMATION
  Report Type: Spontaneous
  Country: US (occurrence: None)
  Receive Date: 20151217
  Receipt Date: 20151217
  Transmission Date: 20160305
  Serious: No
  Sender: FDA-Public Use
  Company Number: None

PATIENT
  Sex: Female
  Weight: 130 kg

DRUGS (4)
  1. ASPIRIN. [Concomitant]
     Active Substance: ASPIRIN
  2. DIGOX [Concomitant]
     Active Substance: DIGOXIN
  3. TYLENOL PM [Suspect]
     Active Substance: ACETAMINOPHEN\DIPHENHYDRAMINE
     Indication: SLEEP DISORDER
     Dosage: 500MG/25MG 1 PII DAY @ NIGHT
     Route: 048
     Dates: start: 201501, end: 20151012
  4. TYLENOL PM [Suspect]
     Active Substance: ACETAMINOPHEN\DIPHENHYDRAMINE
     Indication: PAIN
     Dosage: 500MG/25MG 1 PII DAY @ NIGHT
     Route: 048
     Dates: start: 201501, end: 20151012

REACTIONS (3)
  - Rash [None]
  - Skin discolouration [None]
  - Pruritus generalised [None]

NARRATIVE: CASE EVENT DATE: 2015
